FAERS Safety Report 24112346 (Version 2)
Quarter: 2024Q3

REPORT INFORMATION
  Report Type: Spontaneous
  Country: US (occurrence: US)
  Receive Date: 20240719
  Receipt Date: 20240819
  Transmission Date: 20241017
  Serious: Yes (Other)
  Sender: BRISTOL MYERS SQUIBB
  Company Number: US-BRISTOL-MYERS SQUIBB COMPANY-2024-112004

PATIENT
  Age: 84 Year
  Sex: Female

DRUGS (1)
  1. POMALYST [Suspect]
     Active Substance: POMALIDOMIDE
     Indication: Plasma cell myeloma
     Dosage: DAILY FOR 21 DAYS THE 7 DAYS OFF
     Route: 048

REACTIONS (8)
  - Urinary tract infection [Unknown]
  - Rash [Unknown]
  - Capillary disorder [Unknown]
  - Blood pressure abnormal [Unknown]
  - Loss of consciousness [Unknown]
  - Fall [Unknown]
  - Cardiac disorder [Unknown]
  - Vein disorder [Unknown]
